FAERS Safety Report 6632413-1 (Version None)
Quarter: 2010Q1

REPORT INFORMATION
  Report Type: 
  Country: None (occurrence: None)
  Receive Date: 20100312
  Receipt Date: 20091109
  Transmission Date: 20100710
  Serious: Yes (Hospitalization)
  Sender: FDA-Public Use
  Company Number: 2005BI020867

PATIENT
  Age: 35 Year
  Sex: Male
  Weight: 83 kg

DRUGS (4)
  1. AVONEX [Suspect]
     Indication: MULTIPLE SCLEROSIS
     Route: 030
     Dates: start: 20050401, end: 20051116
  2. AVONEX [Suspect]
     Route: 030
     Dates: end: 20061001
  3. BACLOFEN [Concomitant]
     Indication: MUSCLE SPASMS
     Dates: start: 20050701
  4. VITAMINS [Concomitant]
     Indication: ROUTINE HEALTH MAINTENANCE

REACTIONS (1)
  - MULTIPLE SCLEROSIS RELAPSE [None]
